FAERS Safety Report 7477978-5 (Version None)
Quarter: 2011Q2

REPORT INFORMATION
  Report Type: 
  Country: None (occurrence: None)
  Receive Date: 20110513
  Receipt Date: 20110228
  Transmission Date: 20111010
  Serious: No
  Sender: FDA-Public Use
  Company Number: US-BAYER-2011-018479

PATIENT
  Age: 35 Year
  Sex: Female

DRUGS (1)
  1. AVELOX [Suspect]
     Dosage: UNK
     Dates: end: 20110220

REACTIONS (7)
  - FEELING ABNORMAL [None]
  - PAIN [None]
  - ANXIETY [None]
  - SKIN REACTION [None]
  - ADVERSE DRUG REACTION [None]
  - PALPITATIONS [None]
  - TENDON PAIN [None]
